FAERS Safety Report 14416758 (Version 1)
Quarter: 2018Q1

REPORT INFORMATION
  Report Type: Spontaneous
  Country: US (occurrence: US)
  Receive Date: 20180119
  Receipt Date: 20180119
  Transmission Date: 20180509
  Serious: No
  Sender: FDA-Public Use
  Company Number: None

PATIENT
  Age: 44 Year
  Sex: Female

DRUGS (2)
  1. MEPOLIZUMAB [Suspect]
     Active Substance: MEPOLIZUMAB
     Indication: ASTHMA
     Route: 058
     Dates: start: 20170711, end: 20171205
  2. MEPOLIZUMAB [Suspect]
     Active Substance: MEPOLIZUMAB
     Indication: EOSINOPHILIC PNEUMONIA CHRONIC
     Route: 058
     Dates: start: 20170711, end: 20171205

REACTIONS (12)
  - Swelling [None]
  - Rash [None]
  - Nausea [None]
  - Erythema multiforme [None]
  - Tongue pruritus [None]
  - Therapy change [None]
  - Paraesthesia oral [None]
  - Injection site pruritus [None]
  - Urticaria [None]
  - Erythema [None]
  - Injection site swelling [None]
  - Pruritus [None]

NARRATIVE: CASE EVENT DATE: 20171205
